FAERS Safety Report 10506734 (Version 1)
Quarter: 2014Q4

REPORT INFORMATION
  Report Type: Spontaneous
  Country: IL (occurrence: None)
  Receive Date: 20141008
  Receipt Date: 20141008
  Transmission Date: 20150528
  Serious: Yes (Death)
  Sender: FDA-Public Use
  Company Number: None

PATIENT
  Age: 84 Year
  Sex: Male
  Weight: 81 kg

DRUGS (2)
  1. DAUNORUBICIN [Suspect]
     Active Substance: DAUNORUBICIN
     Dates: end: 20140924
  2. CYTARABINE. [Suspect]
     Active Substance: CYTARABINE
     Dates: end: 20140928

REACTIONS (2)
  - Respiratory disorder [None]
  - Pyrexia [None]

NARRATIVE: CASE EVENT DATE: 20141004
